FAERS Safety Report 7782547-3 (Version None)
Quarter: 2011Q3

REPORT INFORMATION
  Report Type: 
  Country: None (occurrence: None)
  Receive Date: 20110923
  Receipt Date: 20110913
  Transmission Date: 20111222
  Serious: Yes (Hospitalization)
  Sender: FDA-Public Use
  Company Number: WAES 0807USA03410

PATIENT
  Age: 67 Year
  Sex: Male

DRUGS (9)
  1. PLACEBO [Suspect]
     Indication: ACUTE CORONARY SYNDROME
     Route: 048
     Dates: start: 20070111
  2. LEVOTHYROXINE SODIUM [Concomitant]
  3. ZOCOR [Suspect]
     Indication: ACUTE CORONARY SYNDROME
     Dosage: 40 MG/DAILY
     Route: 048
     Dates: start: 20070111
  4. ASPIRIN [Concomitant]
  5. RISPERIDONE [Concomitant]
  6. BISOPROLOL [Concomitant]
  7. SEROQUEL [Concomitant]
  8. PLAVIX [Concomitant]
  9. RAMIPRIL [Concomitant]

REACTIONS (6)
  - PSYCHOTIC DISORDER [None]
  - DELUSION [None]
  - RESTLESSNESS [None]
  - FALL [None]
  - AGITATION [None]
  - AGGRESSION [None]
